FAERS Safety Report 15487702 (Version 3)
Quarter: 2018Q4

REPORT INFORMATION
  Report Type: Spontaneous
  Country: DE (occurrence: DE)
  Receive Date: 20181011
  Receipt Date: 20181120
  Transmission Date: 20190205
  Serious: Yes (Other)
  Sender: FDA-Public Use
  Company Number: DE-JNJFOC-20181002412

PATIENT
  Age: 58 Year
  Sex: Female
  Weight: 55 kg

DRUGS (2)
  1. STELARA [Suspect]
     Active Substance: USTEKINUMAB
     Indication: CROHN^S DISEASE
     Route: 058
     Dates: start: 20180405
  2. STELARA [Suspect]
     Active Substance: USTEKINUMAB
     Indication: CROHN^S DISEASE
     Route: 058

REACTIONS (4)
  - Postmenopausal haemorrhage [Not Recovered/Not Resolved]
  - Abdominal pain [Unknown]
  - Back pain [Unknown]
  - Mood swings [Unknown]

NARRATIVE: CASE EVENT DATE: 201810
